FAERS Safety Report 16920101 (Version 1)
Quarter: 2019Q4

REPORT INFORMATION
  Report Type: Spontaneous
  Country: US (occurrence: US)
  Receive Date: 20191015
  Receipt Date: 20191015
  Transmission Date: 20200122
  Serious: Yes (Life-Threatening, Hospitalization, Disabling)
  Sender: FDA-Public Use
  Company Number: None

PATIENT
  Age: 89 Year
  Sex: Male
  Weight: 73.2 kg

DRUGS (2)
  1. XARELTO [Suspect]
     Active Substance: RIVAROXABAN
     Dates: end: 20191014
  2. PRASUGREL. [Concomitant]
     Active Substance: PRASUGREL
     Dates: start: 20180201, end: 20191014

REACTIONS (3)
  - Haemorrhage intracranial [None]
  - Transient ischaemic attack [None]
  - Carotid artery stenosis [None]

NARRATIVE: CASE EVENT DATE: 20191014
